FAERS Safety Report 19245186 (Version 1)
Quarter: 2021Q2

REPORT INFORMATION
  Report Type: Report from Study
  Country: None (occurrence: ES)
  Receive Date: 20210512
  Receipt Date: 20210512
  Transmission Date: 20210717
  Serious: Yes (Other)
  Sender: FDA-Public Use
  Company Number: ES-ABBVIE-21K-144-3898624-00

PATIENT
  Sex: Female
  Weight: 98 kg

DRUGS (2)
  1. DUODOPA [Suspect]
     Active Substance: CARBIDOPA\LEVODOPA
  2. DUODOPA [Suspect]
     Active Substance: CARBIDOPA\LEVODOPA
     Indication: PARKINSON^S DISEASE
     Route: 050
     Dates: start: 20190305

REACTIONS (6)
  - Flatulence [Not Recovered/Not Resolved]
  - Hypophagia [Unknown]
  - Nausea [Not Recovered/Not Resolved]
  - Mobility decreased [Unknown]
  - Weight decreased [Not Recovered/Not Resolved]
  - Nervousness [Not Recovered/Not Resolved]
